FAERS Safety Report 5905551-6 (Version None)
Quarter: 2008Q4

REPORT INFORMATION
  Report Type: 
  Country: None (occurrence: None)
  Receive Date: 20081002
  Receipt Date: 20080925
  Transmission Date: 20090506
  Serious: Yes (Hospitalization)
  Sender: FDA-Public Use
  Company Number: US-ALLERGAN-0812080US

PATIENT
  Sex: Male

DRUGS (5)
  1. COMBIGAN [Suspect]
     Indication: GLAUCOMA
     Dosage: UNK, UNK
     Route: 047
     Dates: start: 20080401, end: 20080916
  2. NIFEDICAL [Concomitant]
  3. LOVASTATIN [Concomitant]
  4. OMEPRAZOLE [Concomitant]
  5. NAPROXEN [Concomitant]

REACTIONS (1)
  - PNEUMONIA [None]
